FAERS Safety Report 25826424 (Version 2)
Quarter: 2025Q4

REPORT INFORMATION
  Report Type: Spontaneous
  Country: JP (occurrence: JP)
  Receive Date: 20250920
  Receipt Date: 20251114
  Transmission Date: 20260118
  Serious: Yes (Hospitalization, Other)
  Sender: UNITED THERAPEUTICS
  Company Number: JP-UNITED THERAPEUTICS-UNT-2023-034745

PATIENT
  Age: 58 Year
  Sex: Female

DRUGS (9)
  1. TREPROSTINIL [Suspect]
     Active Substance: TREPROSTINIL
     Indication: Pulmonary arterial hypertension
     Dosage: 36 ?G, QD [PER DAY]
     Dates: start: 20231109
  2. TREPROSTINIL [Suspect]
     Active Substance: TREPROSTINIL
     Dosage: 54 ?G, QID
  3. TREPROSTINIL [Suspect]
     Active Substance: TREPROSTINIL
     Dosage: 48 ?G, QID
  4. UPTRAVI [Concomitant]
     Active Substance: SELEXIPAG
     Indication: Product used for unknown indication
     Dosage: UNK
  5. TADALAFIL [Concomitant]
     Active Substance: TADALAFIL
     Indication: Product used for unknown indication
     Dosage: UNK
  6. URSODIOL [Concomitant]
     Active Substance: URSODIOL
     Indication: Product used for unknown indication
     Dosage: UNK
  7. OPSUMIT [Concomitant]
     Active Substance: MACITENTAN
     Indication: Product used for unknown indication
     Dosage: UNK
  8. DIETARY SUPPLEMENT\PROBIOTICS [Concomitant]
     Active Substance: DIETARY SUPPLEMENT\PROBIOTICS NOS
     Indication: Product used for unknown indication
     Dosage: 1 DF, TID
  9. DIETARY SUPPLEMENT\PROBIOTICS [Concomitant]
     Active Substance: DIETARY SUPPLEMENT\PROBIOTICS NOS
     Dosage: 2 DF, TID

REACTIONS (7)
  - Pneumococcal infection [Recovered/Resolved]
  - Flushing [Not Recovered/Not Resolved]
  - Nasopharyngitis [Unknown]
  - Diarrhoea [Unknown]
  - Influenza [Unknown]
  - Abdominal distension [Unknown]
  - Rhinorrhoea [Unknown]

NARRATIVE: CASE EVENT DATE: 20231121
